FAERS Safety Report 5607845-0 (Version None)
Quarter: 2008Q1

REPORT INFORMATION
  Report Type: 
  Country: None (occurrence: None)
  Receive Date: 20080130
  Receipt Date: 20080122
  Transmission Date: 20080703
  Serious: Yes (Other)
  Sender: FDA-Public Use
  Company Number: MX-AVENTIS-200810446EU

PATIENT
  Age: 89 Year
  Sex: Female
  Weight: 52 kg

DRUGS (3)
  1. LASIX [Suspect]
     Route: 048
     Dates: start: 20071101, end: 20071101
  2. LASIX [Suspect]
     Route: 048
     Dates: start: 20071101, end: 20080101
  3. LASILACTON [Suspect]
     Dosage: DOSE: 50/20
     Route: 048
     Dates: start: 20080101, end: 20080120

REACTIONS (3)
  - ANXIETY [None]
  - HALLUCINATION [None]
  - IRRITABILITY [None]
